FAERS Safety Report 7397139-8 (Version None)
Quarter: 2011Q2

REPORT INFORMATION
  Report Type: 
  Country: None (occurrence: None)
  Receive Date: 20110406
  Receipt Date: 20110328
  Transmission Date: 20111010
  Serious: Yes (Other)
  Sender: FDA-Public Use
  Company Number: B0701543A

PATIENT
  Sex: Male

DRUGS (4)
  1. REYATAZ [Suspect]
     Indication: HIV INFECTION
     Dosage: 400MG PER DAY
     Route: 048
     Dates: start: 20080101
  2. UVEDOSE [Concomitant]
     Dosage: 1UNIT EVERY TWO WEEKS
     Route: 048
  3. KIVEXA [Suspect]
     Indication: HIV INFECTION
     Dosage: 1UNIT PER DAY
     Route: 048
     Dates: start: 20080101
  4. XYZAL [Concomitant]
     Dosage: 1UNIT PER DAY
     Route: 048

REACTIONS (1)
  - TENDON RUPTURE [None]
